FAERS Safety Report 6447623-6 (Version None)
Quarter: 2009Q4

REPORT INFORMATION
  Report Type: 
  Country: None (occurrence: None)
  Receive Date: 20091119
  Receipt Date: 20090901
  Transmission Date: 20100525
  Serious: Yes (Other)
  Sender: FDA-Public Use
  Company Number: US-AMGEN-KDL362696

PATIENT
  Sex: Female

DRUGS (1)
  1. ENBREL [Suspect]
     Indication: PSORIATIC ARTHROPATHY
     Route: 058

REACTIONS (7)
  - CONVULSION [None]
  - DIZZINESS [None]
  - JOINT LOCK [None]
  - LIGAMENT INJURY [None]
  - NAUSEA [None]
  - PARAESTHESIA [None]
  - VOMITING [None]
